FAERS Safety Report 18214649 (Version 4)
Quarter: 2021Q3

REPORT INFORMATION
  Report Type: Spontaneous
  Country: US (occurrence: US)
  Receive Date: 20200831
  Receipt Date: 20210908
  Transmission Date: 20211014
  Serious: No
  Sender: FDA-Public Use
  Company Number: US-SA-2020SA229158

PATIENT
  Age: 76 Year
  Sex: Female

DRUGS (7)
  1. ATORVASTATIN CALCIUM. [Concomitant]
     Active Substance: ATORVASTATIN CALCIUM
     Dosage: UNK
     Route: 065
  2. CYMBALTA [Concomitant]
     Active Substance: DULOXETINE HYDROCHLORIDE
     Dosage: UNK
     Route: 065
  3. DUPIXENT [Suspect]
     Active Substance: DUPILUMAB
     Indication: PRODUCT USED FOR UNKNOWN INDICATION
     Dosage: 300 MG, QOW
     Route: 058
     Dates: start: 20200716
  4. ALBUTEROL SULFATE. [Concomitant]
     Active Substance: ALBUTEROL SULFATE
     Dosage: UNK,SU AER 108
     Route: 065
  5. SINGULAIR [Concomitant]
     Active Substance: MONTELUKAST SODIUM
     Dosage: UNK
     Route: 065
  6. ZOLOFT [Concomitant]
     Active Substance: SERTRALINE HYDROCHLORIDE
     Dosage: UNK
     Route: 065
  7. FLUTICASONE. [Concomitant]
     Active Substance: FLUTICASONE
     Dosage: UNK, SUS 50 MCG/AC
     Route: 065

REACTIONS (3)
  - Product dose omission issue [Unknown]
  - Salivary hypersecretion [Unknown]
  - Productive cough [Recovered/Resolved]

NARRATIVE: CASE EVENT DATE: 2020
